FAERS Safety Report 15190318 (Version 1)
Quarter: 2018Q3

REPORT INFORMATION
  Report Type: Spontaneous
  Country: US (occurrence: US)
  Receive Date: 20180724
  Receipt Date: 20180724
  Transmission Date: 20181010
  Serious: No
  Sender: FDA-Public Use
  Company Number: US-HORIZON-PEN-0692-2018

PATIENT
  Age: 37 Year
  Sex: Male

DRUGS (1)
  1. PENNSAID [Suspect]
     Active Substance: DICLOFENAC SODIUM
     Indication: OSTEOARTHRITIS
     Dosage: 2 PUMPS TWICE A DAY

REACTIONS (2)
  - Drug ineffective [Not Recovered/Not Resolved]
  - Application site exfoliation [Not Recovered/Not Resolved]
